FAERS Safety Report 18584602 (Version 1)
Quarter: 2020Q4

REPORT INFORMATION
  Report Type: Report from Study
  Country: ZA (occurrence: ZA)
  Receive Date: 20201207
  Receipt Date: 20201207
  Transmission Date: 20210114
  Serious: Yes (Other)
  Sender: FDA-Public Use
  Company Number: NVSC2020ZA318278

PATIENT
  Age: 45 Year
  Sex: Female

DRUGS (1)
  1. COSENTYX [Suspect]
     Active Substance: SECUKINUMAB
     Indication: ANKYLOSING SPONDYLITIS
     Dosage: 150 MG, QMO
     Route: 058
     Dates: start: 20200401

REACTIONS (11)
  - Accidental exposure to product [Unknown]
  - Product dose omission issue [Unknown]
  - Hepatomegaly [Unknown]
  - Needle issue [Unknown]
  - Device malfunction [Unknown]
  - Nausea [Unknown]
  - Pain [Unknown]
  - Malaise [Unknown]
  - Fatigue [Unknown]
  - Injury associated with device [Unknown]
  - Vomiting [Unknown]

NARRATIVE: CASE EVENT DATE: 20201030
